FAERS Safety Report 16902188 (Version 2)
Quarter: 2019Q4

REPORT INFORMATION
  Report Type: Report from Study
  Country: KR (occurrence: KR)
  Receive Date: 20191010
  Receipt Date: 20191107
  Transmission Date: 20200122
  Serious: Yes (Hospitalization)
  Sender: FDA-Public Use
  Company Number: KR-TEVA-2019-KR-1121049

PATIENT
  Age: 36 Year
  Sex: Male
  Weight: 82 kg

DRUGS (5)
  1. RITUXIMAB. [Concomitant]
     Active Substance: RITUXIMAB
     Indication: PRODUCT USED FOR UNKNOWN INDICATION
     Dosage: 727 MG, UNKNOWN FREQ. (BSA 1.94)
     Route: 065
     Dates: start: 20190530
  2. RITUXIMAB. [Concomitant]
     Active Substance: RITUXIMAB
     Dosage: 727 MG, UNKNOWN FREQ. (BSA 1.94)
     Route: 065
     Dates: start: 20190805
  3. RITUXIMAB. [Concomitant]
     Active Substance: RITUXIMAB
     Dosage: 727 MG, UNKNOWN FREQ. (BSA 1.94)
     Route: 065
     Dates: start: 20190906
  4. RITUXIMAB. [Concomitant]
     Active Substance: RITUXIMAB
     Dosage: 727 MG, UNKNOWN FREQ. (BSA 1.94)
     Route: 065
     Dates: start: 20190701
  5. SYMBENDA [Suspect]
     Active Substance: BENDAMUSTINE HYDROCHLORIDE
     Indication: B-CELL LYMPHOMA
     Route: 042
     Dates: start: 20190530, end: 20190907

REACTIONS (1)
  - Colitis [Recovered/Resolved]

NARRATIVE: CASE EVENT DATE: 20190721
